FAERS Safety Report 5122003-4 (Version None)
Quarter: 2006Q4

REPORT INFORMATION
  Report Type: 
  Country: None (occurrence: None)
  Receive Date: 20061004
  Receipt Date: 20061004
  Transmission Date: 20070319
  Serious: Yes (Other)
  Sender: FDA-Public Use
  Company Number: None

PATIENT
  Age: 93 Year
  Sex: Male
  Weight: 56.2 kg

DRUGS (7)
  1. CEFEPIME [Suspect]
     Dosage: 1GM , ONE DOSE, INTRAVEN
     Route: 042
     Dates: start: 20060717, end: 20060717
  2. DONEPEZIL HCL [Concomitant]
  3. DOCUSATE SODIUM (COLACE) [Concomitant]
  4. METOPROLOL SUCCINATE [Concomitant]
  5. PRILOSEC [Concomitant]
  6. DEMEROL [Concomitant]
  7. ASPIRIN [Concomitant]

REACTIONS (3)
  - BRONCHOSPASM [None]
  - DYSPNOEA [None]
  - HYPERTENSION [None]
